FAERS Safety Report 14238632 (Version 1)
Quarter: 2017Q4

REPORT INFORMATION
  Report Type: Spontaneous
  Country: US (occurrence: None)
  Receive Date: 20171129
  Receipt Date: 20171129
  Transmission Date: 20180321
  Serious: Yes (Hospitalization)
  Sender: FDA-Public Use
  Company Number: None

PATIENT
  Age: 64 Year
  Sex: Female

DRUGS (18)
  1. MONTELUKAST [Concomitant]
     Active Substance: MONTELUKAST SODIUM
  2. FUROSEMIDE. [Concomitant]
     Active Substance: FUROSEMIDE
  3. RANITIDINE. [Concomitant]
     Active Substance: RANITIDINE
  4. LIPITOR [Concomitant]
     Active Substance: ATORVASTATIN CALCIUM
  5. MULTI-VITE [Concomitant]
  6. ZANTAC [Concomitant]
     Active Substance: RANITIDINE HYDROCHLORIDE
  7. HYDROCO/APAP [Concomitant]
     Active Substance: ACETAMINOPHEN\HYDROCODONE
  8. VENTOLIN HFA [Concomitant]
     Active Substance: ALBUTEROL SULFATE
  9. LEVOTHYROXIN [Concomitant]
     Active Substance: LEVOTHYROXINE
  10. HYDRALAZINE [Concomitant]
     Active Substance: HYDRALAZINE HYDROCHLORIDE
  11. IMATINIB / 100MG [Suspect]
     Active Substance: IMATINIB
     Indication: LEUKAEMIA
     Route: 048
     Dates: start: 20170817
  12. POT CHLORIDE [Concomitant]
     Active Substance: POTASSIUM CHLORIDE
  13. VITAMIN B12 [Concomitant]
     Active Substance: CYANOCOBALAMIN
  14. VITAMIN D [Concomitant]
     Active Substance: CHOLECALCIFEROL
  15. DEMADEX [Concomitant]
     Active Substance: TORSEMIDE
  16. ATORVASTATIN [Concomitant]
     Active Substance: ATORVASTATIN
  17. ATENOLOL. [Concomitant]
     Active Substance: ATENOLOL
  18. CEPHALEXIN. [Concomitant]
     Active Substance: CEPHALEXIN

REACTIONS (2)
  - Renal failure [None]
  - Diarrhoea [None]

NARRATIVE: CASE EVENT DATE: 201708
